FAERS Safety Report 4906142-6 (Version None)
Quarter: 2006Q1

REPORT INFORMATION
  Report Type: 
  Country: None (occurrence: None)
  Receive Date: 20060206
  Receipt Date: 20060127
  Transmission Date: 20060701
  Serious: Yes (Other)
  Sender: FDA-Public Use
  Company Number: 2006-01-1762

PATIENT
  Age: 11 Year
  Sex: Male
  Weight: 40 kg

DRUGS (5)
  1. CELESTONE [Suspect]
     Indication: NASOPHARYNGITIS
     Dosage: 4 MG QD ORAL
     Route: 048
     Dates: start: 20060124, end: 20060126
  2. BETAMETHASONE [Concomitant]
  3. GENTALINE (GENTAMICIN SULFATE) [Concomitant]
  4. AUGMENTIN '125' [Concomitant]
  5. GOMENOL (NIAOULI OIL) [Concomitant]

REACTIONS (2)
  - DELUSION [None]
  - SLEEP TERROR [None]
